FAERS Safety Report 10749293 (Version 2)
Quarter: 2015Q3

REPORT INFORMATION
  Report Type: Report from Study
  Country: US (occurrence: US)
  Receive Date: 20150129
  Receipt Date: 20150824
  Transmission Date: 20151125
  Serious: Yes (Hospitalization, Other)
  Sender: FDA-Public Use
  Company Number: US-EXELIXIS-CABO-14004961

PATIENT
  Sex: Male
  Weight: 66 kg

DRUGS (14)
  1. COMETRIQ [Suspect]
     Active Substance: CABOZANTINIB S-MALATE
     Dosage: 60 MG, QD
     Route: 048
     Dates: start: 20141224
  2. NEXIUM [Concomitant]
     Active Substance: ESOMEPRAZOLE MAGNESIUM
  3. REGLAN [Concomitant]
     Active Substance: METOCLOPRAMIDE HYDROCHLORIDE
  4. NORCO [Concomitant]
     Active Substance: ACETAMINOPHEN\HYDROCODONE BITARTRATE
  5. COMETRIQ [Suspect]
     Active Substance: CABOZANTINIB S-MALATE
     Dosage: 40 MG, QD
     Route: 048
     Dates: start: 20150817
  6. XANAX [Concomitant]
     Active Substance: ALPRAZOLAM
  7. COMETRIQ [Suspect]
     Active Substance: CABOZANTINIB S-MALATE
     Dosage: 60 MG, QD
     Route: 048
     Dates: end: 20150111
  8. AMOXICILLIN. [Concomitant]
     Active Substance: AMOXICILLIN
  9. MEDROL [Concomitant]
     Active Substance: METHYLPREDNISOLONE
  10. COMETRIQ [Suspect]
     Active Substance: CABOZANTINIB S-MALATE
     Indication: RENAL CANCER
     Dosage: 60 MG, QD
     Route: 048
     Dates: start: 20141105, end: 20141216
  11. PROPRANOLOL [Concomitant]
     Active Substance: PROPRANOLOL\PROPRANOLOL HYDROCHLORIDE
  12. COMETRIQ [Suspect]
     Active Substance: CABOZANTINIB S-MALATE
     Dosage: 60 MG, QD
     Route: 048
     Dates: start: 20150113, end: 2015
  13. COMETRIQ [Suspect]
     Active Substance: CABOZANTINIB S-MALATE
     Dosage: 40 MG, QD
     Route: 048
     Dates: start: 20150221, end: 201507
  14. PANTOPRAZOLE [Concomitant]
     Active Substance: PANTOPRAZOLE SODIUM

REACTIONS (19)
  - Pneumothorax [Unknown]
  - Chest pain [Unknown]
  - Stomatitis [Unknown]
  - Muscle strain [Unknown]
  - Oral discomfort [Unknown]
  - Oropharyngeal pain [Unknown]
  - Weight decreased [Unknown]
  - Anxiety [Recovering/Resolving]
  - Hepatic pain [Unknown]
  - Pneumonia [Unknown]
  - Vomiting [Recovered/Resolved]
  - Back pain [Unknown]
  - Off label use [Unknown]
  - Dyspnoea [Unknown]
  - Nausea [Recovered/Resolved]
  - Metastases to spine [Unknown]
  - Neoplasm [Unknown]
  - Hyperchlorhydria [Unknown]
  - Anaemia [Unknown]
